FAERS Safety Report 9385200 (Version 1)
Quarter: 2013Q2

REPORT INFORMATION
  Report Type: Spontaneous
  Country: US (occurrence: None)
  Receive Date: 20130628
  Receipt Date: 20130628
  Transmission Date: 20140414
  Serious: Yes (Life-Threatening, Hospitalization, Other)
  Sender: FDA-Public Use
  Company Number: US-ZYDUS-001501

PATIENT
  Age: 69 Year
  Sex: Female

DRUGS (2)
  1. AMLODIPINE [Suspect]
  2. ATENOLOL [Suspect]

REACTIONS (7)
  - Suicide attempt [None]
  - Overdose [None]
  - Shock [None]
  - Vomiting [None]
  - Somnolence [None]
  - Hypokalaemia [None]
  - Ventricular fibrillation [None]
